FAERS Safety Report 4750077-9 (Version None)
Quarter: 2005Q3

REPORT INFORMATION
  Report Type: 
  Country: None (occurrence: None)
  Receive Date: 20050822
  Receipt Date: 20050809
  Transmission Date: 20060218
  Serious: Yes (Hospitalization)
  Sender: FDA-Public Use
  Company Number: 2005113464

PATIENT
  Age: 55 Year
  Sex: Male

DRUGS (3)
  1. ALDACTONE [Suspect]
     Indication: PRIMARY HYPERALDOSTERONISM
     Dosage: ORAL
     Route: 048
  2. ADALAT [Concomitant]
  3. DORNER (BERAPROST SODIUM) [Concomitant]

REACTIONS (1)
  - DIFFICULTY IN WALKING [None]
